FAERS Safety Report 6239213-5 (Version None)
Quarter: 2009Q2

REPORT INFORMATION
  Report Type: 
  Country: None (occurrence: None)
  Receive Date: 20090622
  Receipt Date: 20090622
  Transmission Date: 20091009
  Serious: Yes (Other)
  Sender: FDA-Public Use
  Company Number: US-PFIZER INC-2009205097

PATIENT

DRUGS (1)
  1. GEODON [Suspect]

REACTIONS (2)
  - HEPATIC CIRRHOSIS [None]
  - HEPATIC FUNCTION ABNORMAL [None]
